FAERS Safety Report 24168968 (Version 1)
Quarter: 2024Q3

REPORT INFORMATION
  Report Type: Spontaneous
  Country: US (occurrence: None)
  Receive Date: 20240802
  Receipt Date: 20240802
  Transmission Date: 20241017
  Serious: Yes (Other)
  Sender: Public
  Company Number: None

PATIENT
  Sex: Male

DRUGS (1)
  1. TALTZ [Suspect]
     Active Substance: IXEKIZUMAB
     Indication: Spondyloarthropathy
     Dosage: FREQ: INJECT 1 SYRINGE UNDER THE SKIN (SUBCUTANEOUS INJECTION) MONTHLY
     Route: 058
     Dates: start: 20231216

REACTIONS (2)
  - Therapy interrupted [None]
  - Surgery [None]
